FAERS Safety Report 7335554-9 (Version None)
Quarter: 2011Q1

REPORT INFORMATION
  Report Type: 
  Country: None (occurrence: None)
  Receive Date: 20110307
  Receipt Date: 20110302
  Transmission Date: 20110831
  Serious: Yes (Other)
  Sender: FDA-Public Use
  Company Number: US-PFIZER INC-2006124564

PATIENT
  Sex: Female
  Weight: 99 kg

DRUGS (1)
  1. LIPITOR [Suspect]
     Dosage: 10 MG DAILY
     Route: 048
     Dates: start: 20030601, end: 20060501

REACTIONS (15)
  - SPEECH DISORDER [None]
  - HYPOAESTHESIA [None]
  - GAIT DISTURBANCE [None]
  - MYOPATHY [None]
  - BALANCE DISORDER [None]
  - IRRITABILITY [None]
  - FATIGUE [None]
  - NEUROPATHY PERIPHERAL [None]
  - HOSTILITY [None]
  - COGNITIVE DISORDER [None]
  - AMNESIA [None]
  - DEPRESSION [None]
  - PARAESTHESIA [None]
  - DISORIENTATION [None]
  - ANGER [None]
